FAERS Safety Report 11881330 (Version 1)
Quarter: 2015Q4

REPORT INFORMATION
  Report Type: Spontaneous
  Country: US (occurrence: US)
  Receive Date: 20151231
  Receipt Date: 20151231
  Transmission Date: 20160305
  Serious: Yes (Other)
  Sender: FDA-Public Use
  Company Number: US-WEST-WARD PHARMACEUTICALS CORP.-US-H14001-15-02199

PATIENT
  Sex: Female

DRUGS (1)
  1. DOXYCYCLINE. [Suspect]
     Active Substance: DOXYCYCLINE
     Indication: STAPHYLOCOCCAL INFECTION
     Route: 065
     Dates: start: 20150915, end: 2015

REACTIONS (3)
  - Internal haemorrhage [Unknown]
  - Feeling abnormal [None]
  - Abdominal discomfort [Unknown]

NARRATIVE: CASE EVENT DATE: 2015
